FAERS Safety Report 16203894 (Version 3)
Quarter: 2019Q2

REPORT INFORMATION
  Report Type: Report from Study
  Country: US (occurrence: US)
  Receive Date: 20190416
  Receipt Date: 20190606
  Transmission Date: 20190711
  Serious: No
  Sender: FDA-Public Use
  Company Number: US-ALEXION PHARMACEUTICALS INC.-A201905680

PATIENT
  Sex: Female

DRUGS (1)
  1. SOLIRIS [Suspect]
     Active Substance: ECULIZUMAB
     Indication: PAROXYSMAL NOCTURNAL HAEMOGLOBINURIA
     Dosage: UNK
     Route: 065

REACTIONS (20)
  - Blood bilirubin increased [Unknown]
  - Abdominal pain [Unknown]
  - Abdominal pain lower [Unknown]
  - Somnolence [Unknown]
  - Muscle spasms [Unknown]
  - Vertigo [Unknown]
  - Feeling abnormal [Unknown]
  - Cognitive disorder [Unknown]
  - Feeling drunk [Unknown]
  - Anxiety [Unknown]
  - Cold sweat [Unknown]
  - Chromaturia [Unknown]
  - Head discomfort [Unknown]
  - Fatigue [Unknown]
  - Insomnia [Unknown]
  - Abdominal discomfort [Unknown]
  - Malaise [Unknown]
  - Platelet count decreased [Unknown]
  - Oropharyngeal pain [Unknown]
  - Jaundice [Unknown]

NARRATIVE: CASE EVENT DATE: 20190222
